FAERS Safety Report 6369759-0 (Version None)
Quarter: 2009Q3

REPORT INFORMATION
  Report Type: 
  Country: None (occurrence: None)
  Receive Date: 20090918
  Receipt Date: 20090831
  Transmission Date: 20100115
  Serious: Yes (Hospitalization, Other)
  Sender: FDA-Public Use
  Company Number: JPI-P-008435

PATIENT
  Age: 42 Year
  Sex: Male
  Weight: 90.7194 kg

DRUGS (11)
  1. XYREM [Suspect]
     Indication: SOMNOLENCE
     Dosage: SEE IMAGE
     Route: 048
     Dates: start: 20090803, end: 20090809
  2. XYREM [Suspect]
     Indication: SOMNOLENCE
     Dosage: SEE IMAGE
     Route: 048
     Dates: start: 20090810, end: 20090816
  3. XYREM [Suspect]
     Indication: SOMNOLENCE
     Dosage: SEE IMAGE
     Route: 048
     Dates: start: 20090817, end: 20090831
  4. XYREM [Suspect]
     Indication: SOMNOLENCE
     Dosage: SEE IMAGE
     Route: 048
     Dates: start: 20090901
  5. CARVEDILOL [Suspect]
     Indication: CARDIAC FAILURE CONGESTIVE
     Dosage: 50 MG (25 MG, 2 IN 1 D)
     Dates: start: 20040101
  6. BACLOFEN [Concomitant]
  7. FOLIC ACID [Concomitant]
  8. LEVETIRACETAM [Concomitant]
  9. HYDRCODONE BITARTRATE AND ACETAMINOPHEN [Concomitant]
  10. FUROSEMIDE [Concomitant]
  11. WARFARIN SODIUM [Concomitant]

REACTIONS (18)
  - COMPARTMENT SYNDROME [None]
  - CONDITION AGGRAVATED [None]
  - CONTUSION [None]
  - FALL [None]
  - HYPERTENSION [None]
  - INSOMNIA [None]
  - INTRACARDIAC THROMBUS [None]
  - JOINT SWELLING [None]
  - LIMB INJURY [None]
  - LOSS OF CONSCIOUSNESS [None]
  - OEDEMA PERIPHERAL [None]
  - PAIN IN EXTREMITY [None]
  - POST PROCEDURAL COMPLICATION [None]
  - PROTHROMBIN TIME ABNORMAL [None]
  - THROMBOSIS [None]
  - TREATMENT NONCOMPLIANCE [None]
  - UNEVALUABLE EVENT [None]
  - VEIN DISORDER [None]
